FAERS Safety Report 23599442 (Version 2)
Quarter: 2024Q1

REPORT INFORMATION
  Report Type: Spontaneous
  Country: US (occurrence: US)
  Receive Date: 20240306
  Receipt Date: 20240328
  Transmission Date: 20240410
  Serious: No
  Sender: FDA-Public Use
  Company Number: US-BRISTOL-MYERS SQUIBB COMPANY-2024-035803

PATIENT
  Age: 65 Year
  Sex: Female
  Weight: 94.8 kg

DRUGS (2)
  1. REVLIMID [Suspect]
     Active Substance: LENALIDOMIDE
     Indication: Plasma cell myeloma
     Route: 048
  2. REVLIMID [Suspect]
     Active Substance: LENALIDOMIDE
     Indication: Chemotherapy

REACTIONS (6)
  - Oropharyngeal pain [Unknown]
  - Odynophagia [Unknown]
  - Nasal congestion [Unknown]
  - Off label use [Unknown]
  - Product dose omission issue [Unknown]
  - Fatigue [Unknown]
